FAERS Safety Report 14704580 (Version 3)
Quarter: 2018Q4

REPORT INFORMATION
  Report Type: Spontaneous
  Country: US (occurrence: US)
  Receive Date: 20180402
  Receipt Date: 20181225
  Transmission Date: 20190204
  Serious: Yes (Other)
  Sender: FDA-Public Use
  Company Number: US-ASTELLAS-2018US015460

PATIENT
  Sex: Male

DRUGS (2)
  1. XTANDI [Suspect]
     Active Substance: ENZALUTAMIDE
     Indication: PROSTATE CANCER
     Route: 048
     Dates: start: 20171219
  2. XTANDI [Suspect]
     Active Substance: ENZALUTAMIDE
     Route: 048
     Dates: start: 20171228

REACTIONS (10)
  - Arthralgia [Unknown]
  - Asthenia [Unknown]
  - Arthritis [Unknown]
  - Diarrhoea [Recovered/Resolved]
  - Vision blurred [Unknown]
  - Fatigue [Unknown]
  - Rhinorrhoea [Not Recovered/Not Resolved]
  - Eye haemorrhage [Unknown]
  - Intervertebral disc protrusion [Recovered/Resolved]
  - Neuralgia [Recovered/Resolved]
